FAERS Safety Report 9442289 (Version 1)
Quarter: 2013Q3

REPORT INFORMATION
  Report Type: Spontaneous
  Country: US (occurrence: US)
  Receive Date: 20130806
  Receipt Date: 20130806
  Transmission Date: 20140515
  Serious: No
  Sender: FDA-Public Use
  Company Number: US-GLAXOSMITHKLINE-A0989081A

PATIENT
  Age: 58 Year
  Sex: Male

DRUGS (6)
  1. ADVAIR [Suspect]
     Indication: CHRONIC OBSTRUCTIVE PULMONARY DISEASE
     Dosage: 2PUFF TWICE PER DAY
     Route: 055
  2. SPIRIVA [Concomitant]
  3. PREDNISONE [Concomitant]
  4. WELLBUTRIN [Concomitant]
  5. ATIVAN [Concomitant]
  6. PROTONIX [Concomitant]

REACTIONS (1)
  - Drug ineffective [Not Recovered/Not Resolved]
